FAERS Safety Report 10493038 (Version 1)
Quarter: 2014Q4

REPORT INFORMATION
  Report Type: Spontaneous
  Country: US (occurrence: US)
  Receive Date: 20141002
  Receipt Date: 20141002
  Transmission Date: 20150528
  Serious: No
  Sender: FDA-Public Use
  Company Number: US-GLAXOSMITHKLINE-A1078403A

PATIENT
  Age: 75 Year
  Sex: Male

DRUGS (9)
  1. VITAMIN D [Concomitant]
     Active Substance: CHOLECALCIFEROL
  2. ADVAIR HFA [Suspect]
     Active Substance: FLUTICASONE PROPIONATE\SALMETEROL XINAFOATE
     Indication: CHRONIC OBSTRUCTIVE PULMONARY DISEASE
     Dosage: 1PUFF TWICE PER DAY
     Route: 055
     Dates: start: 20140624
  3. SUPPLEMENT [Concomitant]
     Active Substance: UNSPECIFIED INGREDIENT
  4. VITAMIN C [Concomitant]
     Active Substance: ASCORBIC ACID
  5. COQ10 [Concomitant]
     Active Substance: UBIDECARENONE
  6. UNKNOWN MEDICATION [Concomitant]
     Active Substance: UNSPECIFIED INGREDIENT
  7. ALBUTEROL INHALER [Concomitant]
     Active Substance: ALBUTEROL
  8. LISINOPRIL. [Concomitant]
     Active Substance: LISINOPRIL
  9. HCTZ [Concomitant]
     Active Substance: HYDROCHLOROTHIAZIDE

REACTIONS (5)
  - Nervousness [Recovered/Resolved]
  - Dyspnoea [Recovering/Resolving]
  - Restlessness [Unknown]
  - Tinnitus [Recovered/Resolved]
  - Flushing [Unknown]

NARRATIVE: CASE EVENT DATE: 20140624
